FAERS Safety Report 7093900-8 (Version None)
Quarter: 2010Q4

REPORT INFORMATION
  Report Type: 
  Country: None (occurrence: None)
  Receive Date: 20101110
  Receipt Date: 20101026
  Transmission Date: 20110411
  Serious: Yes (Hospitalization)
  Sender: FDA-Public Use
  Company Number: FR-BAYER-201044486GPV

PATIENT
  Age: 21 Year
  Sex: Male

DRUGS (2)
  1. LEUKINE [Suspect]
     Indication: PRODUCT USED FOR UNKNOWN INDICATION
     Route: 058
     Dates: start: 20071207, end: 20071211
  2. LEUKINE [Suspect]
     Route: 058
     Dates: start: 20071212, end: 20071214

REACTIONS (1)
  - NEUTROPENIA [None]
